FAERS Safety Report 9429592 (Version 1)
Quarter: 2013Q3

REPORT INFORMATION
  Report Type: Report from Study
  Country: US (occurrence: US)
  Receive Date: 20130730
  Receipt Date: 20130730
  Transmission Date: 20140515
  Serious: No
  Sender: FDA-Public Use
  Company Number: US-ABBOTT-13P-163-1062750-00

PATIENT
  Age: 85 Year
  Sex: Female
  Weight: 74 kg

DRUGS (9)
  1. NIASPAN (COATED) [Suspect]
     Indication: ANGIOGRAM PERIPHERAL ABNORMAL
     Dosage: 1 - 500 MG TABLET AT BEDTIME
     Route: 048
     Dates: start: 201302
  2. GABAPENTIN [Concomitant]
     Indication: PRODUCT USED FOR UNKNOWN INDICATION
     Dosage: 100 MG EVERY MORNING
     Route: 048
  3. MEPERIDINE [Concomitant]
     Indication: PRODUCT USED FOR UNKNOWN INDICATION
     Dosage: 50 MG EVERY MORNING
     Route: 048
  4. LORAZEPAM [Concomitant]
     Indication: PRODUCT USED FOR UNKNOWN INDICATION
     Dosage: 0.5 MG EVERY MORNING
     Route: 048
  5. CILOSTAZOL [Concomitant]
     Indication: PRODUCT USED FOR UNKNOWN INDICATION
     Route: 048
  6. AMLODIPINE [Concomitant]
     Indication: PRODUCT USED FOR UNKNOWN INDICATION
     Route: 048
  7. PEPCID [Concomitant]
     Indication: PRODUCT USED FOR UNKNOWN INDICATION
     Dosage: 20 MG BEFORE MEAL
     Route: 048
  8. IRON [Concomitant]
     Indication: PRODUCT USED FOR UNKNOWN INDICATION
     Route: 048
  9. COATED ASPIRIN [Concomitant]
     Indication: PRODUCT USED FOR UNKNOWN INDICATION
     Dosage: WITH DOSE OF NIASPAN
     Route: 048

REACTIONS (3)
  - Malaise [Not Recovered/Not Resolved]
  - Generalised erythema [Not Recovered/Not Resolved]
  - Pruritus [Not Recovered/Not Resolved]
